FAERS Safety Report 19352215 (Version 1)
Quarter: 2021Q2

REPORT INFORMATION
  Report Type: Spontaneous
  Country: IR (occurrence: IR)
  Receive Date: 20210531
  Receipt Date: 20210531
  Transmission Date: 20210717
  Serious: Yes (Death)
  Sender: FDA-Public Use
  Company Number: IR-BAUSCH-BL-2021-017928

PATIENT
  Age: 66 Year
  Sex: Female

DRUGS (4)
  1. OXYGEN. [Concomitant]
     Active Substance: OXYGEN
     Indication: SUPPORTIVE CARE
     Dosage: WITH THE NASAL CANNULA AT 4?5 LITERS PER MINUTE
     Dates: start: 202010
  2. INTERFERON BETA?1A [Concomitant]
     Active Substance: INTERFERON BETA-1A
     Indication: COVID-19 PNEUMONIA
     Dosage: ONCE IN ALTERNATE DAY FOR FIVE DOSES, STOPPED ON DAY 9
     Route: 058
     Dates: start: 202010, end: 2020
  3. DEXAMETHASONE. [Suspect]
     Active Substance: DEXAMETHASONE
     Indication: PRODUCT USE IN UNAPPROVED INDICATION
  4. DEXAMETHASONE. [Suspect]
     Active Substance: DEXAMETHASONE
     Indication: COVID-19 PNEUMONIA
     Route: 042
     Dates: start: 202010, end: 2020

REACTIONS (3)
  - Product use in unapproved indication [Unknown]
  - Aspergillus infection [Fatal]
  - Bronchopulmonary aspergillosis [Fatal]

NARRATIVE: CASE EVENT DATE: 2020
